FAERS Safety Report 8961169 (Version 8)
Quarter: 2013Q2

REPORT INFORMATION
  Report Type: Spontaneous
  Country: US (occurrence: US)
  Receive Date: 20121212
  Receipt Date: 20130612
  Transmission Date: 20140414
  Serious: Yes (Death, Hospitalization)
  Sender: FDA-Public Use
  Company Number: US-GLAXOSMITHKLINE-A1005123A

PATIENT
  Age: 66 Year
  Sex: Female

DRUGS (3)
  1. FLOLAN [Suspect]
     Indication: PULMONARY ARTERIAL HYPERTENSION
     Dosage: 7NGKM CONTINUOUS
     Route: 042
     Dates: start: 20121023, end: 20130608
  2. LASIX [Concomitant]
  3. LETAIRIS [Concomitant]

REACTIONS (8)
  - Death [Fatal]
  - Gastrointestinal haemorrhage [Unknown]
  - Pulmonary arterial hypertension [Unknown]
  - Haematemesis [Unknown]
  - Faeces discoloured [Unknown]
  - Fluid overload [Unknown]
  - Dyspnoea [Unknown]
  - Ill-defined disorder [Unknown]
